FAERS Safety Report 14012405 (Version 2)
Quarter: 2017Q4

REPORT INFORMATION
  Report Type: Spontaneous
  Country: FR (occurrence: FR)
  Receive Date: 20170926
  Receipt Date: 20171006
  Transmission Date: 20180321
  Serious: Yes (Life-Threatening, Other)
  Sender: FDA-Public Use
  Company Number: FR-PFIZER INC-2017412076

PATIENT
  Age: 83 Year
  Sex: Female

DRUGS (8)
  1. ALDACTONE [Suspect]
     Active Substance: SPIRONOLACTONE
     Indication: HYPERTENSION
     Dosage: 25 MG, 1X/DAY
     Route: 048
     Dates: start: 2010, end: 20170906
  2. LEVOTHYROX [Suspect]
     Active Substance: LEVOTHYROXINE
     Indication: THYROIDECTOMY
     Dosage: 100 UG, 1X/DAY
     Route: 048
     Dates: start: 2010
  3. DUPHASTON [Suspect]
     Active Substance: DYDROGESTERONE
     Indication: HORMONE REPLACEMENT THERAPY
     Dosage: 2 DF 14 TIMES IN A MONTH
     Route: 048
  4. EFFERALGAN [Suspect]
     Active Substance: ACETAMINOPHEN
     Indication: PAIN
     Dosage: 1 TO 3 TABLETS DAILY AS NEEDED
     Route: 048
  5. SPAGULAX [Suspect]
     Active Substance: PLANTAGO OVATA SEED
     Indication: CONSTIPATION
     Dosage: 1 DF, 3X/DAY
     Route: 048
  6. ESTRAPATCH [Suspect]
     Active Substance: ESTRADIOL
     Indication: HORMONE REPLACEMENT THERAPY
     Dosage: 1 DF, EVERY 7 WEEKS
     Route: 062
  7. DAFLON /01026201/ [Suspect]
     Active Substance: DIOSMIN\HESPERIDIN
     Indication: PERIPHERAL VENOUS DISEASE
     Dosage: 500 MG, 2X/DAY
     Route: 048
  8. FLECTOR /00372302/ [Suspect]
     Active Substance: DICLOFENAC SODIUM
     Indication: TENDONITIS
     Dosage: 1 APPLICATION, 3X/DAY
     Route: 003

REACTIONS (6)
  - Syncope [Recovered/Resolved]
  - Respiratory arrest [Recovered/Resolved]
  - Malaise [Recovered/Resolved]
  - Blood thyroid stimulating hormone decreased [Not Recovered/Not Resolved]
  - Hyponatraemia [Unknown]
  - Clonus [Recovered/Resolved]

NARRATIVE: CASE EVENT DATE: 20170907
